FAERS Safety Report 9876783 (Version 2)
Quarter: 2014Q1

REPORT INFORMATION
  Report Type: Other
  Country: US (occurrence: US)
  Receive Date: 20140206
  Receipt Date: 20140206
  Transmission Date: 20141002
  Serious: No
  Sender: FDA-Public Use
  Company Number: US-ACORDA-ACO_35949_2013

PATIENT
  Sex: Female
  Weight: 108.84 kg

DRUGS (10)
  1. AMPYRA [Suspect]
     Indication: GAIT DISTURBANCE
     Dosage: 10 MG, BID
     Route: 048
     Dates: start: 201304, end: 2013
  2. AMPYRA [Suspect]
     Dosage: 10 MG, QD. MORNING
     Route: 048
     Dates: start: 2013, end: 2013
  3. AMPYRA [Suspect]
     Dosage: 10 MG, PRN
     Route: 048
     Dates: start: 2013
  4. GILENYA [Concomitant]
     Indication: MULTIPLE SCLEROSIS
     Dosage: 0.5 MG, QD
     Route: 048
  5. OXCARBAZEPINE [Concomitant]
     Indication: PRODUCT USED FOR UNKNOWN INDICATION
     Dosage: 300 MG, TID
     Route: 048
  6. OXYBUTYNIN [Concomitant]
     Indication: HYPERTONIC BLADDER
     Dosage: 10 MG, BID
     Route: 048
  7. BUPROPION [Concomitant]
     Indication: MOOD ALTERED
     Dosage: 150 (2) MG, QD
     Route: 048
  8. VITAMIN D3 [Concomitant]
     Indication: PRODUCT USED FOR UNKNOWN INDICATION
     Dosage: 2000 IU, UNK
  9. VITAMIN D [Concomitant]
     Indication: PRODUCT USED FOR UNKNOWN INDICATION
     Dosage: UNK
     Route: 060
  10. VITAMIN E [Concomitant]
     Indication: PRODUCT USED FOR UNKNOWN INDICATION
     Dosage: UNK

REACTIONS (6)
  - Myalgia [Recovered/Resolved]
  - Urinary incontinence [Not Recovered/Not Resolved]
  - Insomnia [Recovered/Resolved]
  - Headache [Unknown]
  - Drug effect decreased [Unknown]
  - Inappropriate schedule of drug administration [Unknown]
